FAERS Safety Report 10031478 (Version 2)
Quarter: 2014Q2

REPORT INFORMATION
  Report Type: Spontaneous
  Country: US (occurrence: US)
  Receive Date: 20140324
  Receipt Date: 20140428
  Transmission Date: 20141212
  Serious: Yes (Other)
  Sender: FDA-Public Use
  Company Number: US-ASTELLAS-2014US002768

PATIENT
  Age: 71 Year
  Sex: Female

DRUGS (2)
  1. MYRBETRIQ [Suspect]
     Indication: HYPERTONIC BLADDER
     Route: 048
     Dates: start: 20140131
  2. CLINDAMYCIN [Suspect]
     Indication: POST PROCEDURAL INFECTION
     Route: 048
     Dates: start: 20140310, end: 20140323

REACTIONS (5)
  - Post procedural infection [Recovered/Resolved]
  - Foot operation [Recovered/Resolved]
  - Intentional product misuse [Unknown]
  - Drug ineffective [Recovered/Resolved]
  - Nail infection [Unknown]
